FAERS Safety Report 8300923-7 (Version None)
Quarter: 2012Q2

REPORT INFORMATION
  Report Type: 
  Country: None (occurrence: None)
  Receive Date: 20120420
  Receipt Date: 20120416
  Transmission Date: 20120825
  Serious: Yes (Hospitalization)
  Sender: FDA-Public Use
  Company Number: CL-BRISTOL-MYERS SQUIBB COMPANY-16528671

PATIENT
  Age: 70 Year
  Sex: Female

DRUGS (2)
  1. SPRYCEL [Suspect]
     Indication: CHRONIC MYELOID LEUKAEMIA
     Dates: start: 20110113
  2. ENALAPRIL MALEATE [Concomitant]

REACTIONS (2)
  - RECTAL HAEMORRHAGE [None]
  - PLATELET COUNT INCREASED [None]
